FAERS Safety Report 4931811-1 (Version None)
Quarter: 2006Q1

REPORT INFORMATION
  Report Type: 
  Country: None (occurrence: None)
  Receive Date: 20060303
  Receipt Date: 20060222
  Transmission Date: 20060701
  Serious: Yes (Hospitalization, Other)
  Sender: FDA-Public Use
  Company Number: US-AVENTIS-200611716US

PATIENT

DRUGS (2)
  1. KETEK [Suspect]
     Indication: SINUSITIS
     Dosage: DOSE: UNK
  2. KETEK [Suspect]
     Indication: UPPER RESPIRATORY TRACT INFECTION
     Dosage: DOSE: UNK

REACTIONS (5)
  - ABDOMINAL DISTENSION [None]
  - ABDOMINAL PAIN UPPER [None]
  - ALANINE AMINOTRANSFERASE INCREASED [None]
  - BLOOD BILIRUBIN INCREASED [None]
  - ILEUS [None]
